FAERS Safety Report 7769125-7 (Version None)
Quarter: 2011Q3

REPORT INFORMATION
  Report Type: 
  Country: None (occurrence: None)
  Receive Date: 20110922
  Receipt Date: 20110711
  Transmission Date: 20111222
  Serious: No
  Sender: FDA-Public Use
  Company Number: US-ASTRAZENECA-2011SE41396

PATIENT
  Age: 30 Year
  Sex: Female

DRUGS (5)
  1. CELEXA [Concomitant]
  2. SEROQUEL [Suspect]
     Indication: BIPOLAR DISORDER
     Route: 048
  3. SEROQUEL [Suspect]
     Route: 048
  4. SEROQUEL [Suspect]
     Route: 048
     Dates: start: 20100101
  5. KLONOPIN [Concomitant]

REACTIONS (6)
  - ADJUSTMENT DISORDER [None]
  - AFFECT LABILITY [None]
  - CRYING [None]
  - INCORRECT DOSE ADMINISTERED [None]
  - DRUG DOSE OMISSION [None]
  - IRRITABILITY [None]
